FAERS Safety Report 8920288 (Version 1)
Quarter: 2012Q4

REPORT INFORMATION
  Report Type: 
  Country: US (occurrence: US)
  Receive Date: 20121122
  Receipt Date: 20121122
  Transmission Date: 20130627
  Serious: Yes (Other)
  Sender: FDA-Public Use
  Company Number: CHPA2012US023603

PATIENT
  Age: 46 Year
  Sex: Female

DRUGS (1)
  1. BENEFIBER W/ WHEAT DEXTRIN [Suspect]
     Indication: CONSTIPATION
     Dosage: 2 tsp per day, as needed
     Route: 048
     Dates: start: 2002

REACTIONS (3)
  - Breast cancer [Unknown]
  - Off label use [Unknown]
  - Incorrect dose administered [Unknown]
